FAERS Safety Report 6658656-9 (Version None)
Quarter: 2010Q1

REPORT INFORMATION
  Report Type: 
  Country: None (occurrence: None)
  Receive Date: 20100330
  Receipt Date: 20100308
  Transmission Date: 20100710
  Serious: Yes (Other)
  Sender: FDA-Public Use
  Company Number: PHEH2009US04600

PATIENT
  Sex: Female
  Weight: 63 kg

DRUGS (9)
  1. RECLAST [Suspect]
     Indication: OSTEOPOROSIS
     Dosage: 5 MG, ONCE/SINGLE
     Dates: start: 20090430, end: 20090430
  2. SEROQUEL [Suspect]
     Indication: ANXIETY
     Dosage: 100 MG, QHS
     Route: 048
     Dates: start: 20080801, end: 20090505
  3. SEROQUEL [Suspect]
     Indication: SLEEP DISORDER
  4. SEROQUEL [Suspect]
     Indication: BIPOLAR DISORDER
  5. SIMVASTATIN [Suspect]
     Indication: BLOOD CHOLESTEROL INCREASED
     Dosage: 20 MG, QHS
     Route: 048
     Dates: start: 20090505
  6. LIPITOR [Suspect]
     Indication: BLOOD CHOLESTEROL INCREASED
     Dosage: UNK, UNK
     Dates: end: 20090505
  7. TEGRETOL [Concomitant]
     Indication: CONVULSION
     Dosage: 200 MG, QD (THREE DAILY) 1 YR.
     Route: 048
  8. PEPCID [Concomitant]
     Indication: GASTROOESOPHAGEAL REFLUX DISEASE
     Dosage: 40 MG, BID
     Route: 048
  9. LORAZEPAM [Concomitant]
     Dosage: 1 MG, QHS
     Route: 048

REACTIONS (11)
  - ABDOMINAL DISTENSION [None]
  - ALANINE AMINOTRANSFERASE INCREASED [None]
  - ARTHRALGIA [None]
  - ASPARTATE AMINOTRANSFERASE INCREASED [None]
  - BLOOD CALCIUM DECREASED [None]
  - BLOOD SODIUM DECREASED [None]
  - DYSPNOEA [None]
  - INFLUENZA LIKE ILLNESS [None]
  - MYALGIA [None]
  - OEDEMA PERIPHERAL [None]
  - PAIN IN EXTREMITY [None]
